FAERS Safety Report 24313363 (Version 1)
Quarter: 2024Q3

REPORT INFORMATION
  Report Type: Spontaneous
  Country: US (occurrence: None)
  Receive Date: 20240912
  Receipt Date: 20240912
  Transmission Date: 20241017
  Serious: No
  Sender: Public
  Company Number: None

PATIENT
  Sex: Female

DRUGS (1)
  1. REPATHA [Suspect]
     Active Substance: EVOLOCUMAB
     Indication: Type V hyperlipidaemia
     Dosage: FREQ: INJECT 1 SYRINGE UNDER THE SKIN (SUBCUTANEOUS INJECTION) EVERY 2 WEEKS
     Route: 058
     Dates: start: 20200221

REACTIONS (8)
  - Diarrhoea [None]
  - Fatigue [None]
  - Influenza like illness [None]
  - Myalgia [None]
  - Nausea [None]
  - Vomiting [None]
  - Surgery [None]
  - Therapy interrupted [None]
